FAERS Safety Report 9442158 (Version 1)
Quarter: 2013Q3

REPORT INFORMATION
  Report Type: Report from Study
  Country: US (occurrence: US)
  Receive Date: 20130806
  Receipt Date: 20130806
  Transmission Date: 20140515
  Serious: Yes (Hospitalization)
  Sender: FDA-Public Use
  Company Number: PHEH2013US016510

PATIENT
  Age: 17 Year
  Sex: Female

DRUGS (1)
  1. TOBRAMYCIN [Suspect]
     Indication: CYSTIC FIBROSIS
     Dosage: UNK UKN, UNK

REACTIONS (1)
  - Aspiration [Recovering/Resolving]
